FAERS Safety Report 9841497 (Version 1)
Quarter: 2014Q1

REPORT INFORMATION
  Report Type: Spontaneous
  Country: US (occurrence: US)
  Receive Date: 20140124
  Receipt Date: 20140124
  Transmission Date: 20141002
  Serious: Yes (Hospitalization)
  Sender: FDA-Public Use
  Company Number: US-BAYER-2014-007641

PATIENT
  Age: 49 Year
  Sex: Female

DRUGS (6)
  1. CALCIUM CARBONATE [Suspect]
     Indication: HYPOCALCAEMIA
     Dosage: 1 DF, TID
     Route: 048
  2. CALCITRIOL [Suspect]
     Indication: HYPOCALCAEMIA
     Dosage: DAILY DOSE 1 ?G
     Route: 048
  3. POTASSIUM PHOSPHATE [Suspect]
     Indication: HYPOPHOSPHATAEMIA
     Dosage: UNK UNK, TID
     Route: 048
  4. MYCOPHENOLATE MOFETIL [Concomitant]
     Indication: IMMUNOSUPPRESSION
  5. CICLOSPORIN [Concomitant]
     Indication: IMMUNOSUPPRESSION
  6. PREDNISONE [Concomitant]
     Indication: IMMUNOSUPPRESSION

REACTIONS (2)
  - Nephrocalcinosis [None]
  - Blood creatinine increased [None]
